FAERS Safety Report 8170017-2 (Version None)
Quarter: 2012Q1

REPORT INFORMATION
  Report Type: 
  Country: None (occurrence: None)
  Receive Date: 20120228
  Receipt Date: 20120220
  Transmission Date: 20120608
  Serious: Yes (Other)
  Sender: FDA-Public Use
  Company Number: IE-JNJFOC-20120211283

PATIENT
  Sex: Male

DRUGS (3)
  1. DAKTACORT [Suspect]
     Indication: PRODUCT USED FOR UNKNOWN INDICATION
     Route: 061
     Dates: start: 20120218
  2. DAKTACORT [Suspect]
     Route: 061
  3. DAKTACORT [Suspect]
     Route: 061
     Dates: start: 20111001

REACTIONS (2)
  - SWELLING FACE [None]
  - LOCAL SWELLING [None]
